FAERS Safety Report 4300496-X (Version None)
Quarter: 2004Q1

REPORT INFORMATION
  Report Type: 
  Country: None (occurrence: None)
  Receive Date: 20040218
  Receipt Date: 20040127
  Transmission Date: 20041129
  Serious: Yes (Hospitalization)
  Sender: FDA-Public Use
  Company Number: USA031254999

PATIENT
  Age: 70 Year
  Sex: Female

DRUGS (8)
  1. FORTEO [Suspect]
     Indication: OSTEOPOROSIS
     Dosage: 20 UG/DAY
     Dates: start: 20031217
  2. EVISTA [Concomitant]
     Indication: OSTEOPOROSIS
  3. DEMEROL [Concomitant]
  4. ATIVAN [Concomitant]
  5. CALTRATE (CALCIUM CARBONATE) [Concomitant]
  6. CENTRUM [Concomitant]
  7. PROVENTIL [Concomitant]
  8. ZOFRAN [Concomitant]

REACTIONS (5)
  - ABNORMAL BEHAVIOUR [None]
  - BACK PAIN [None]
  - FALL [None]
  - PARANOIA [None]
  - SPINAL COMPRESSION FRACTURE [None]
